FAERS Safety Report 8317994 (Version 10)
Quarter: 2013Q3

REPORT INFORMATION
  Report Type: Report from Study
  Country: PH (occurrence: PH)
  Receive Date: 20120103
  Receipt Date: 20130911
  Transmission Date: 20140515
  Serious: Yes (Hospitalization, Other)
  Sender: FDA-Public Use
  Company Number: PH-BRISTOL-MYERS SQUIBB COMPANY-16319329

PATIENT
  Age: 38 Year
  Sex: Male

DRUGS (3)
  1. ABILIFY TABS [Suspect]
     Indication: SCHIZOPHRENIA
     Dosage: 5-22D11:6MG;?23D11-11JN12:12MG;?26D11:1MG;29D INTRPD;10JA12:12MG;11-12JA12:18MG?12JN-22FE12:24MG
     Route: 048
     Dates: start: 20111205, end: 20120222
  2. RISPERIDONE [Concomitant]
     Dosage: 1MG:26DEC11,INTERRUPTED ON 29DEC11.4MG SINCE 25FEB2012.
     Dates: start: 20111222, end: 20111229
  3. PARACETAMOL [Concomitant]
     Dates: start: 20120213, end: 20120214

REACTIONS (1)
  - Schizophrenia [Recovered/Resolved with Sequelae]
